FAERS Safety Report 9012076 (Version 1)
Quarter: 2012Q4

REPORT INFORMATION
  Report Type: Spontaneous
  Country: DK (occurrence: None)
  Receive Date: 20121228
  Receipt Date: 20121228
  Transmission Date: 20130627
  Serious: Yes (Other)
  Sender: FDA-Public Use
  Company Number: 2012MA014269

PATIENT
  Age: 44 Year
  Sex: Male

DRUGS (10)
  1. MIRTAZAPINE TABLETS 30 MG (AMIDE) (MIRTAZAPINE) [Suspect]
     Indication: DEPRESSIVE EPISODE
     Route: 048
     Dates: start: 20121024, end: 20121121
  2. ISOSORBIDE MONONITRATE [Concomitant]
  3. LANSOPRAZOLE [Concomitant]
  4. THIAMINE [Concomitant]
  5. METOPROLOL [Concomitant]
  6. WARFARIN [Concomitant]
  7. PERINDOPRIL [Concomitant]
  8. PRAVASTATIN [Concomitant]
  9. PARACETAMOL [Concomitant]
  10. GLYCERYL TRINITRATE [Concomitant]

REACTIONS (4)
  - Confusional state [None]
  - Gait disturbance [None]
  - Cognitive disorder [None]
  - Mobility decreased [None]
